FAERS Safety Report 18197475 (Version 2)
Quarter: 2020Q4

REPORT INFORMATION
  Report Type: Spontaneous
  Country: BE (occurrence: BE)
  Receive Date: 20200826
  Receipt Date: 20201203
  Transmission Date: 20210113
  Serious: Yes (Other)
  Sender: FDA-Public Use
  Company Number: BE-AUROBINDO-AUR-APL-2020-044453

PATIENT
  Age: 35 Year
  Sex: Male

DRUGS (13)
  1. DESOMEDINE [Suspect]
     Active Substance: HEXAMIDINE DIISETHIONATE
     Indication: ACANTHAMOEBA KERATITIS
     Dosage: 0.1 PERCENT
     Route: 048
  2. POLIHEXANIDE [Suspect]
     Active Substance: POLIHEXANIDE
     Dosage: ONCE EVERY HOUR FOR FIRST 24 HRS
     Route: 065
  3. ACICLOVIR [Suspect]
     Active Substance: ACYCLOVIR
     Indication: ACANTHAMOEBA KERATITIS
     Dosage: UNK
     Route: 048
  4. PROPAMIDINE ISETIONATE [Suspect]
     Active Substance: PROPAMIDINE ISETHIONATE
     Indication: ACANTHAMOEBA KERATITIS
     Dosage: UNK, EVERY HOUR, ONCE EVERY HOUR FOR FIRST 24 HRS
     Route: 065
  5. IBUPROFEN. [Suspect]
     Active Substance: IBUPROFEN
     Indication: ACANTHAMOEBA KERATITIS
     Dosage: 600 MILLIGRAM, 3 TIMES A DAY
     Route: 048
  6. AZATHIOPRINE. [Suspect]
     Active Substance: AZATHIOPRINE
     Indication: ACANTHAMOEBA KERATITIS
     Dosage: 150 MILLIGRAM, ONCE A DAY
     Route: 065
  7. POLIHEXANIDE [Suspect]
     Active Substance: POLIHEXANIDE
     Indication: ACANTHAMOEBA KERATITIS
     Dosage: UNK, SIX TIMES A DAY
     Route: 048
  8. CHLORHEXIDINE [Suspect]
     Active Substance: CHLORHEXIDINE
     Indication: ACANTHAMOEBA KERATITIS
     Dosage: UNK
     Route: 065
  9. METHYLPREDNISOLONE. [Suspect]
     Active Substance: METHYLPREDNISOLONE
     Indication: ACANTHAMOEBA KERATITIS
     Dosage: UNK
     Route: 048
  10. MOXIFLOXACIN. [Suspect]
     Active Substance: MOXIFLOXACIN
     Indication: ACANTHAMOEBA KERATITIS
     Dosage: UNK, SIX TIMES A DAY
     Route: 065
  11. ATROPINE. [Suspect]
     Active Substance: ATROPINE
     Indication: ACANTHAMOEBA KERATITIS
     Dosage: UNK, TWO TIMES A DAY, 1 DAY
     Route: 065
  12. SOLU-MEDROL [Suspect]
     Active Substance: METHYLPREDNISOLONE SODIUM SUCCINATE
     Indication: ACANTHAMOEBA KERATITIS
     Dosage: 1 GRAM (FOR 3 DAYS)
     Route: 042
  13. NEPAFENAC [Suspect]
     Active Substance: NEPAFENAC
     Indication: ACANTHAMOEBA KERATITIS
     Dosage: 0.1 PERCENT, ONCE A DAY
     Route: 061

REACTIONS (16)
  - Osteonecrosis [Unknown]
  - Corneal epithelium defect [Unknown]
  - Blood lactate dehydrogenase increased [Unknown]
  - Toxicity to various agents [Unknown]
  - Anaemia [Unknown]
  - Bronchopulmonary aspergillosis [Unknown]
  - Myopathy [Unknown]
  - Muscle atrophy [Unknown]
  - Muscular weakness [Unknown]
  - Scleritis [Not Recovered/Not Resolved]
  - Asthenia [Unknown]
  - Anterior chamber inflammation [Unknown]
  - Pulmonary mass [Unknown]
  - Corneal oedema [Unknown]
  - Drug ineffective [Unknown]
  - Keratic precipitates [Unknown]
